FAERS Safety Report 14240046 (Version 1)
Quarter: 2017Q4

REPORT INFORMATION
  Report Type: Spontaneous
  Country: US (occurrence: US)
  Receive Date: 20171130
  Receipt Date: 20171130
  Transmission Date: 20180321
  Serious: Yes (Hospitalization)
  Sender: FDA-Public Use
  Company Number: US-ALEXION PHARMACEUTICALS INC-A201713282

PATIENT
  Age: 24 Year
  Sex: Female
  Weight: 60.6 kg

DRUGS (1)
  1. SOLIRIS [Suspect]
     Active Substance: ECULIZUMAB
     Indication: ATYPICAL HAEMOLYTIC URAEMIC SYNDROME
     Dosage: 900 MG, QW
     Route: 042
     Dates: start: 20171020, end: 20171110

REACTIONS (3)
  - Platelet count decreased [Unknown]
  - Exposure during pregnancy [Unknown]
  - Epistaxis [Unknown]

NARRATIVE: CASE EVENT DATE: 20171115
